FAERS Safety Report 24081047 (Version 1)
Quarter: 2024Q3

REPORT INFORMATION
  Report Type: Spontaneous
  Country: US (occurrence: US)
  Receive Date: 20240711
  Receipt Date: 20240711
  Transmission Date: 20241016
  Serious: No
  Sender: BRISTOL MYERS SQUIBB
  Company Number: US-BRISTOL-MYERS SQUIBB COMPANY-2024-109596

PATIENT
  Age: 74 Year
  Sex: Female
  Weight: 75.6 kg

DRUGS (2)
  1. INREBIC [Suspect]
     Active Substance: FEDRATINIB HYDROCHLORIDE
     Indication: Myelofibrosis
     Route: 048
     Dates: start: 20231118
  2. JAKAFI [Concomitant]
     Active Substance: RUXOLITINIB
     Indication: Myelofibrosis
     Dates: start: 20210831

REACTIONS (2)
  - Somnolence [Unknown]
  - Fatigue [Unknown]
